FAERS Safety Report 16146413 (Version 1)
Quarter: 2019Q2

REPORT INFORMATION
  Report Type: Spontaneous
  Country: US (occurrence: US)
  Receive Date: 20190402
  Receipt Date: 20190402
  Transmission Date: 20190711
  Serious: No
  Sender: FDA-Public Use
  Company Number: US-BAUSCH-BL-2019-008570

PATIENT
  Age: 66 Year
  Sex: Male
  Weight: 89.89 kg

DRUGS (6)
  1. VICTOZA [Concomitant]
     Active Substance: LIRAGLUTIDE
     Indication: PRODUCT USED FOR UNKNOWN INDICATION
     Route: 065
  2. GLUMETZA [Suspect]
     Active Substance: METFORMIN HYDROCHLORIDE
     Indication: DIABETES MELLITUS
     Dosage: BLUE-COLORED GLUMETZA 500MG TABLETS, STARTED 7 TO 8 YEARS PRIOR TO INITIAL REPORT
     Route: 048
  3. GLUMETZA [Suspect]
     Active Substance: METFORMIN HYDROCHLORIDE
     Dosage: WHITE-COLORED GLUMETZA 500MG TABLETS
     Route: 048
     Dates: start: 20190206, end: 20190306
  4. GLUMETZA [Suspect]
     Active Substance: METFORMIN HYDROCHLORIDE
     Dosage: BLUE-COLORED GLUMETZA 500MG TABLETS
     Route: 048
     Dates: start: 20190307, end: 201903
  5. GLUMETZA [Suspect]
     Active Substance: METFORMIN HYDROCHLORIDE
     Dosage: WHITE-COLORED GLUMETZA 500MG TABLETS
     Route: 048
     Dates: start: 20190311
  6. NOVOLOG [Concomitant]
     Active Substance: INSULIN ASPART
     Indication: PRODUCT USED FOR UNKNOWN INDICATION
     Route: 065

REACTIONS (2)
  - Product availability issue [Unknown]
  - Diarrhoea [Not Recovered/Not Resolved]

NARRATIVE: CASE EVENT DATE: 20190209
